FAERS Safety Report 12356860 (Version 2)
Quarter: 2016Q2

REPORT INFORMATION
  Report Type: Spontaneous
  Country: US (occurrence: US)
  Receive Date: 20160511
  Receipt Date: 20160513
  Transmission Date: 20160815
  Serious: No
  Sender: FDA-Public Use
  Company Number: US-PFIZER INC-2016223927

PATIENT
  Age: 62 Year
  Sex: Male
  Weight: 86 kg

DRUGS (1)
  1. ADVIL [Suspect]
     Active Substance: IBUPROFEN
     Indication: ARTHRITIS
     Dosage: 1 TABLET
     Route: 048
     Dates: end: 20160419

REACTIONS (5)
  - Dry eye [Recovered/Resolved]
  - Expired product administered [Recovered/Resolved]
  - Eye oedema [Recovered/Resolved]
  - Somnolence [Recovered/Resolved]
  - Intentional product misuse [Recovered/Resolved]

NARRATIVE: CASE EVENT DATE: 20160418
